FAERS Safety Report 4386086-1 (Version None)
Quarter: 2004Q2

REPORT INFORMATION
  Report Type: 
  Country: None (occurrence: None)
  Receive Date: 20040615
  Receipt Date: 20030814
  Transmission Date: 20050107
  Serious: Yes (Hospitalization, Other)
  Sender: FDA-Public Use
  Company Number: M2004.6761

PATIENT
  Age: 28 Year
  Sex: Male

DRUGS (2)
  1. ATENOLOL [Suspect]
     Dosage: 300 MG, BD
  2. NIFEDIPINE [Concomitant]

REACTIONS (5)
  - ACCIDENTAL OVERDOSE [None]
  - BRADYCARDIA [None]
  - CARDIAC ARREST [None]
  - DRUG INTERACTION [None]
  - HYPOTENSION [None]
